FAERS Safety Report 16016348 (Version 1)
Quarter: 2019Q1

REPORT INFORMATION
  Report Type: Spontaneous
  Country: IT (occurrence: IT)
  Receive Date: 20190228
  Receipt Date: 20190228
  Transmission Date: 20190418
  Serious: Yes (Hospitalization, Other)
  Sender: FDA-Public Use
  Company Number: IT-ALKEM LABORATORIES LIMITED-IT-ALKEM-2019-01234

PATIENT
  Age: 61 Year
  Sex: Female
  Weight: 43 kg

DRUGS (6)
  1. VALGANCICLOVIR. [Concomitant]
     Active Substance: VALGANCICLOVIR
     Indication: ANTIVIRAL PROPHYLAXIS
     Dosage: 450 MG, EVERY 3 DAYS
     Route: 065
  2. TACROLIMUS. [Suspect]
     Active Substance: TACROLIMUS
     Indication: IMMUNOSUPPRESSANT DRUG THERAPY
     Dosage: UNK
     Route: 065
  3. EVEROLIMUS. [Suspect]
     Active Substance: EVEROLIMUS
     Indication: IMMUNOSUPPRESSANT DRUG THERAPY
     Dosage: 1.25 MG, BID
     Route: 065
  4. PREDNISONE. [Suspect]
     Active Substance: PREDNISONE
     Indication: IMMUNOSUPPRESSANT DRUG THERAPY
     Dosage: 20 MG, QD
     Route: 065
  5. PENTAMIDINE [Concomitant]
     Active Substance: PENTAMIDINE
     Indication: ANTIFUNGAL PROPHYLAXIS
     Dosage: UNK, (1 VIAL PER AEROSOL) ONCE PER MONTH
     Route: 065
  6. MYCOPHENOLATE MOFETIL. [Suspect]
     Active Substance: MYCOPHENOLATE MOFETIL
     Indication: IMMUNOSUPPRESSANT DRUG THERAPY
     Dosage: 720 MG, BID
     Route: 065

REACTIONS (11)
  - Renal tubular necrosis [Unknown]
  - Cytomegalovirus infection [Recovered/Resolved]
  - Hypercalcaemia [Recovered/Resolved]
  - Escherichia sepsis [Recovered/Resolved]
  - Oral herpes [Recovered/Resolved]
  - Escherichia urinary tract infection [Recovered/Resolved]
  - Acute kidney injury [Recovered/Resolved]
  - Adverse drug reaction [Unknown]
  - Delayed graft function [Unknown]
  - Drug level decreased [Unknown]
  - Pneumocystis jirovecii pneumonia [Recovered/Resolved]
